FAERS Safety Report 15832746 (Version 1)
Quarter: 2019Q1

REPORT INFORMATION
  Report Type: Spontaneous
  Country: US (occurrence: US)
  Receive Date: 20190116
  Receipt Date: 20190116
  Transmission Date: 20190417
  Serious: No
  Sender: FDA-Public Use
  Company Number: US-ELI_LILLY_AND_COMPANY-US201901003996

PATIENT
  Sex: Female

DRUGS (2)
  1. HUMALOG [Suspect]
     Active Substance: INSULIN LISPRO
     Dosage: 17 U, DAILY (AT NIGHT)
     Route: 065
     Dates: start: 201811
  2. HUMALOG [Suspect]
     Active Substance: INSULIN LISPRO
     Indication: GESTATIONAL DIABETES
     Dosage: 28 U, EACH MORNING
     Route: 065
     Dates: start: 201811

REACTIONS (1)
  - Maternal exposure during pregnancy [Not Recovered/Not Resolved]
